FAERS Safety Report 12934127 (Version 1)
Quarter: 2016Q4

REPORT INFORMATION
  Report Type: Report from Study
  Country: None (occurrence: BR)
  Receive Date: 20161111
  Receipt Date: 20161111
  Transmission Date: 20170207
  Serious: Yes (Other)
  Sender: FDA-Public Use
  Company Number: BR-ABBVIE-16P-020-1773397-00

PATIENT
  Sex: Female
  Weight: 67 kg

DRUGS (3)
  1. DAFLON [Concomitant]
     Active Substance: DIOSMIN\HESPERIDIN
     Indication: POOR PERIPHERAL CIRCULATION
     Route: 048
  2. STEZZA [Concomitant]
     Indication: CONTRACEPTION
     Route: 048
     Dates: start: 2014
  3. HUMIRA [Suspect]
     Active Substance: ADALIMUMAB
     Indication: ANKYLOSING SPONDYLITIS
     Route: 058
     Dates: start: 20100207

REACTIONS (8)
  - Spinal disorder [Unknown]
  - Drug effect incomplete [Unknown]
  - Von Willebrand^s disease [Not Recovered/Not Resolved]
  - Cardiovascular disorder [Unknown]
  - Peripheral swelling [Not Recovered/Not Resolved]
  - Pain in extremity [Not Recovered/Not Resolved]
  - Blood prolactin abnormal [Unknown]
  - Headache [Not Recovered/Not Resolved]

NARRATIVE: CASE EVENT DATE: 2014
